FAERS Safety Report 23351324 (Version 7)
Quarter: 2025Q2

REPORT INFORMATION
  Report Type: Report from Study
  Country: US (occurrence: US)
  Receive Date: 20231229
  Receipt Date: 20250621
  Transmission Date: 20250717
  Serious: Yes (Hospitalization, Other)
  Sender: UCB
  Company Number: US-UCBSA-2023002174

PATIENT
  Age: 13 Year
  Sex: Female
  Weight: 91 kg

DRUGS (9)
  1. FINTEPLA [Suspect]
     Active Substance: FENFLURAMINE
     Indication: Severe myoclonic epilepsy of infancy
     Dosage: 5  MILLILITER, 2X/DAY (BID)
     Dates: start: 20220920
  2. FINTEPLA [Suspect]
     Active Substance: FENFLURAMINE
     Indication: Lennox-Gastaut syndrome
     Dosage: 5 MILLILITER, 2X/DAY (BID)
  3. FINTEPLA [Suspect]
     Active Substance: FENFLURAMINE
     Dosage: 6 MILLILITER, 2X/DAY (BID)
  4. FINTEPLA [Suspect]
     Active Substance: FENFLURAMINE
     Dosage: 6 MILLILITER, 2X/DAY (BID)
  5. FINTEPLA [Suspect]
     Active Substance: FENFLURAMINE
     Dosage: 6 MILLILITER, 2X/DAY (BID)
  6. FINTEPLA [Suspect]
     Active Substance: FENFLURAMINE
     Dosage: 4 MILLILITER, 2X/DAY (BID)
  7. FINTEPLA [Suspect]
     Active Substance: FENFLURAMINE
     Dosage: 4 MILLILITER, 2X/DAY (BID)
     Dates: start: 20221101
  8. FINTEPLA [Suspect]
     Active Substance: FENFLURAMINE
  9. ONFI [Concomitant]
     Active Substance: CLOBAZAM
     Indication: Seizure

REACTIONS (8)
  - Electroencephalogram abnormal [Not Recovered/Not Resolved]
  - Seizure [Not Recovered/Not Resolved]
  - Sinusitis [Not Recovered/Not Resolved]
  - Pharyngitis [Not Recovered/Not Resolved]
  - Bacterial infection [Not Recovered/Not Resolved]
  - Aphasia [Not Recovered/Not Resolved]
  - Weight increased [Not Recovered/Not Resolved]
  - Constipation [Not Recovered/Not Resolved]

NARRATIVE: CASE EVENT DATE: 20230113
